FAERS Safety Report 6492559-8 (Version None)
Quarter: 2009Q4

REPORT INFORMATION
  Report Type: 
  Country: None (occurrence: None)
  Receive Date: 20091214
  Receipt Date: 20091209
  Transmission Date: 20100525
  Serious: Yes (Death)
  Sender: FDA-Public Use
  Company Number: ES-ROCHE-673834

PATIENT
  Age: 55 Year
  Sex: Male

DRUGS (3)
  1. XELODA [Suspect]
     Indication: COLORECTAL CANCER
     Dosage: FREQUENCY: CYCLIC
     Route: 065
     Dates: start: 20081202, end: 20090224
  2. AVASTIN [Suspect]
     Indication: COLORECTAL CANCER
     Dosage: FREQUENCY: CYCLIC
     Route: 065
     Dates: start: 20081202, end: 20090224
  3. IRINOTECAN HCL [Suspect]
     Indication: COLORECTAL CANCER
     Dosage: FRQUENCY: CYCLIC
     Route: 065
     Dates: start: 20081202, end: 20090224

REACTIONS (1)
  - HAEMOPTYSIS [None]
